FAERS Safety Report 19185715 (Version 2)
Quarter: 2021Q2

REPORT INFORMATION
  Report Type: Spontaneous
  Country: MA (occurrence: MA)
  Receive Date: 20210427
  Receipt Date: 20210511
  Transmission Date: 20210717
  Serious: Yes (Hospitalization, Other)
  Sender: FDA-Public Use
  Company Number: MA-PFIZER INC-2021419904

PATIENT
  Age: 46 Year
  Sex: Male

DRUGS (3)
  1. FLUOROURACIL. [Suspect]
     Active Substance: FLUOROURACIL
     Indication: BLADDER ADENOCARCINOMA STAGE UNSPECIFIED
     Dosage: 3 CYCLIC
  2. OXALIPLATIN. [Suspect]
     Active Substance: OXALIPLATIN
     Indication: BLADDER ADENOCARCINOMA STAGE UNSPECIFIED
     Dosage: 3 CYCLIC
  3. CALCIUM FOLINATE [Suspect]
     Active Substance: LEUCOVORIN CALCIUM
     Indication: BLADDER ADENOCARCINOMA STAGE UNSPECIFIED
     Dosage: 3 CYCLIC

REACTIONS (4)
  - Off label use [Unknown]
  - Mucosal inflammation [Unknown]
  - Oral candidiasis [Unknown]
  - Aplastic anaemia [Unknown]
